FAERS Safety Report 5574965-9 (Version None)
Quarter: 2007Q4

REPORT INFORMATION
  Report Type: 
  Country: None (occurrence: None)
  Receive Date: 20071227
  Receipt Date: 20071221
  Transmission Date: 20080405
  Serious: Yes (Other)
  Sender: FDA-Public Use
  Company Number: B0499691A

PATIENT
  Age: 51 Year
  Sex: Female

DRUGS (10)
  1. PAXIL [Suspect]
     Indication: DEPRESSION
     Dosage: 20MG PER DAY
     Route: 048
     Dates: start: 20060701, end: 20061201
  2. PAXIL [Suspect]
     Dosage: 10MG PER DAY
     Route: 048
     Dates: start: 20061201, end: 20070101
  3. PAXIL [Suspect]
     Dosage: 20MG PER DAY
     Route: 048
     Dates: start: 20070101, end: 20070201
  4. PAXIL [Suspect]
     Dosage: 30MG PER DAY
     Route: 048
     Dates: start: 20070201, end: 20070401
  5. PAXIL [Suspect]
     Dosage: 40MG PER DAY
     Route: 048
     Dates: start: 20070401, end: 20070517
  6. PAXIL [Suspect]
     Dosage: 20MG PER DAY
     Route: 048
     Dates: start: 20070518
  7. MYSLEE [Concomitant]
     Route: 048
     Dates: end: 20061001
  8. MYSLEE [Concomitant]
     Route: 048
     Dates: start: 20070101
  9. SILECE [Concomitant]
     Route: 065
     Dates: start: 20070201
  10. DOGMATYL [Concomitant]
     Route: 065
     Dates: end: 20060830

REACTIONS (6)
  - ACTIVATION SYNDROME [None]
  - ANXIETY [None]
  - HYPOMANIA [None]
  - IMPULSIVE BEHAVIOUR [None]
  - IRRITABILITY [None]
  - MANIA [None]
